FAERS Safety Report 5843507-2 (Version None)
Quarter: 2008Q3

REPORT INFORMATION
  Report Type: 
  Country: None (occurrence: None)
  Receive Date: 20080813
  Receipt Date: 20080805
  Transmission Date: 20090109
  Serious: Yes (Hospitalization)
  Sender: FDA-Public Use
  Company Number: US-WYE-H05382008

PATIENT
  Age: 12 Year
  Sex: Female

DRUGS (1)
  1. ADVIL [Suspect]
     Indication: HEADACHE
     Route: 048
     Dates: start: 20060603, end: 20060603

REACTIONS (2)
  - ANAPHYLACTIC SHOCK [None]
  - RED MAN SYNDROME [None]
